FAERS Safety Report 17791915 (Version 2)
Quarter: 2020Q3

REPORT INFORMATION
  Report Type: Spontaneous
  Country: US (occurrence: US)
  Receive Date: 20200515
  Receipt Date: 20200706
  Transmission Date: 20201102
  Serious: Yes (Hospitalization, Other)
  Sender: FDA-Public Use
  Company Number: US-PFIZER INC-2020193008

PATIENT
  Age: 53 Year
  Sex: Female
  Weight: 62.14 kg

DRUGS (3)
  1. LORBRENA [Suspect]
     Active Substance: LORLATINIB
     Dosage: 25 MG, 1X/DAY
     Route: 048
     Dates: start: 2020, end: 2020
  2. LORBRENA [Suspect]
     Active Substance: LORLATINIB
     Indication: LUNG NEOPLASM MALIGNANT
     Dosage: 75 MG, 1X/DAY
     Route: 048
     Dates: start: 201911, end: 2019
  3. LORBRENA [Suspect]
     Active Substance: LORLATINIB
     Dosage: 50 MG, 1X/DAY
     Route: 048
     Dates: start: 2019, end: 2020

REACTIONS (5)
  - Cognitive disorder [Unknown]
  - Feeling of despair [Unknown]
  - Neuropathy peripheral [Not Recovered/Not Resolved]
  - Headache [Unknown]
  - Visual impairment [Unknown]

NARRATIVE: CASE EVENT DATE: 2019
